FAERS Safety Report 8155502-1 (Version None)
Quarter: 2012Q1

REPORT INFORMATION
  Report Type: 
  Country: None (occurrence: None)
  Receive Date: 20120222
  Receipt Date: 20120207
  Transmission Date: 20120608
  Serious: Yes (Other)
  Sender: FDA-Public Use
  Company Number: US-SHIRE-ALL1-2012-00803

PATIENT
  Sex: Male
  Weight: 34.014 kg

DRUGS (4)
  1. MULTI-VITAMINS [Concomitant]
     Indication: SUPPLEMENTATION THERAPY
     Dosage: UNK, 1X/DAY:QD
     Route: 048
  2. VYVANSE [Suspect]
     Dosage: 40 MG, 1X/DAY:QD
     Route: 048
     Dates: start: 20111222
  3. RISPERIDONE [Suspect]
     Indication: SLEEP DISORDER
     Dosage: UNK UNK, 1X/DAY:QD(TWO 0.25 MG DAILY)
     Route: 048
     Dates: start: 20110101
  4. VYVANSE [Suspect]
     Indication: ATTENTION DEFICIT/HYPERACTIVITY DISORDER
     Dosage: 30 MG, 1X/DAY:QD
     Route: 048
     Dates: start: 20110101, end: 20111201

REACTIONS (14)
  - PANIC REACTION [None]
  - DECREASED APPETITE [None]
  - MOOD ALTERED [None]
  - HEADACHE [None]
  - CONDITION AGGRAVATED [None]
  - ABDOMINAL PAIN [None]
  - ANGER [None]
  - DYSPEPSIA [None]
  - CHEST PAIN [None]
  - AGGRESSION [None]
  - SUICIDAL IDEATION [None]
  - HALLUCINATION [None]
  - HYPERHIDROSIS [None]
  - VOMITING [None]
